FAERS Safety Report 18199498 (Version 1)
Quarter: 2020Q3

REPORT INFORMATION
  Report Type: Spontaneous
  Country: US (occurrence: US)
  Receive Date: 20200826
  Receipt Date: 20200826
  Transmission Date: 20201103
  Serious: Yes (Hospitalization, Disabling, Other)
  Sender: FDA-Public Use
  Company Number: US-ASTRAZENECA-2020SF08001

PATIENT
  Age: 18645 Day
  Sex: Male
  Weight: 93 kg

DRUGS (58)
  1. ARANESP [Concomitant]
     Active Substance: DARBEPOETIN ALFA
  2. NIFEDICAL XL [Concomitant]
     Active Substance: NIFEDIPINE
  3. DOCUSATE [Concomitant]
     Active Substance: DOCUSATE
  4. FERROUS SULFATE. [Concomitant]
     Active Substance: FERROUS SULFATE
  5. CARNITOR [Concomitant]
     Active Substance: LEVOCARNITINE
     Dates: start: 20130104
  6. METRONIDAZOLE. [Concomitant]
     Active Substance: METRONIDAZOLE
     Dates: start: 20100604
  7. PROTONIX [Suspect]
     Active Substance: PANTOPRAZOLE SODIUM
     Indication: GASTROOESOPHAGEAL REFLUX DISEASE
     Route: 048
     Dates: start: 20151123
  8. ZOFRAN [Concomitant]
     Active Substance: ONDANSETRON HYDROCHLORIDE
     Indication: VOMITING
     Dates: start: 2014, end: 2015
  9. TRAZODONE [Concomitant]
     Active Substance: TRAZODONE HYDROCHLORIDE
     Indication: DEPRESSION
     Dates: start: 2009, end: 2017
  10. BUMETANIDE. [Concomitant]
     Active Substance: BUMETANIDE
     Dates: start: 20160707
  11. SENOKOT [Concomitant]
     Active Substance: SENNOSIDES
  12. CLINDAMYCIN. [Concomitant]
     Active Substance: CLINDAMYCIN
     Dates: start: 20141002
  13. CEREFOLIN [Concomitant]
     Active Substance: CYANOCOBALAMIN CO-57\LEVOMEFOLATE CALCIUM\PYRIDOXINE HYDROCHLORIDE\RIBOFLAVIN
     Dates: start: 20130214
  14. ZYLOPRIM [Concomitant]
     Active Substance: ALLOPURINOL
     Dates: start: 20090506
  15. BYSTOLIC [Concomitant]
     Active Substance: NEBIVOLOL HYDROCHLORIDE
     Indication: HYPERTENSION
     Dates: start: 2013, end: 2017
  16. CIALIS [Concomitant]
     Active Substance: TADALAFIL
     Dates: start: 20160827
  17. NASONEX [Concomitant]
     Active Substance: MOMETASONE FUROATE
  18. ATENOL [Concomitant]
     Active Substance: ATENOLOL
     Dates: start: 20160905
  19. NORVASC [Concomitant]
     Active Substance: AMLODIPINE BESYLATE
     Dates: start: 20100604
  20. CYTOMEL [Concomitant]
     Active Substance: LIOTHYRONINE SODIUM
     Dates: start: 20090212
  21. PRILOSEC OTC [Suspect]
     Active Substance: OMEPRAZOLE MAGNESIUM
     Indication: GASTROOESOPHAGEAL REFLUX DISEASE
     Route: 048
     Dates: start: 2013, end: 2015
  22. PROTONIX [Suspect]
     Active Substance: PANTOPRAZOLE SODIUM
     Indication: GASTROOESOPHAGEAL REFLUX DISEASE
     Dosage: GENERIC
     Route: 048
     Dates: start: 20160728
  23. AMNESTEEM [Concomitant]
     Active Substance: ISOTRETINOIN
     Indication: ACNE
     Dates: start: 2015, end: 2016
  24. PREDNISONE. [Concomitant]
     Active Substance: PREDNISONE
  25. FIORICET [Concomitant]
     Active Substance: ACETAMINOPHEN\BUTALBITAL\CAFFEINE
  26. CYANOCOBALAMIN. [Concomitant]
     Active Substance: CYANOCOBALAMIN
     Dates: start: 20160822
  27. BENZOYL PEROXIDE. [Concomitant]
     Active Substance: BENZOYL PEROXIDE
     Dates: start: 20141002
  28. TRENTAL [Concomitant]
     Active Substance: PENTOXIFYLLINE
  29. HYDRALAZINE [Concomitant]
     Active Substance: HYDRALAZINE HYDROCHLORIDE
     Dates: start: 20160110
  30. TRAMADOL. [Concomitant]
     Active Substance: TRAMADOL
  31. PARLODEL [Concomitant]
     Active Substance: BROMOCRIPTINE MESYLATE
     Dates: start: 20090421
  32. NEXIUM [Suspect]
     Active Substance: ESOMEPRAZOLE MAGNESIUM
     Indication: GASTROOESOPHAGEAL REFLUX DISEASE
     Route: 048
     Dates: start: 20140416
  33. NEXIUM [Suspect]
     Active Substance: ESOMEPRAZOLE MAGNESIUM
     Indication: GASTROOESOPHAGEAL REFLUX DISEASE
     Route: 048
     Dates: start: 20110803
  34. PROTONIX [Suspect]
     Active Substance: PANTOPRAZOLE SODIUM
     Indication: GASTROOESOPHAGEAL REFLUX DISEASE
     Dosage: GENERIC
     Route: 065
     Dates: start: 2015, end: 2017
  35. BENICAR [Concomitant]
     Active Substance: OLMESARTAN MEDOXOMIL
     Indication: HYPERTENSION
     Dates: start: 2012, end: 2018
  36. DOXYCYCLINE. [Concomitant]
     Active Substance: DOXYCYCLINE
     Indication: INFECTION
     Dates: start: 2015
  37. SODIUM BICARBONATE. [Concomitant]
     Active Substance: SODIUM BICARBONATE
     Indication: GASTROOESOPHAGEAL REFLUX DISEASE
     Dates: start: 2015
  38. LABETALOL [Concomitant]
     Active Substance: LABETALOL\LABETALOL HYDROCHLORIDE
     Dates: start: 20160708
  39. ALPRAZOLAM. [Concomitant]
     Active Substance: ALPRAZOLAM
     Dates: start: 20090521
  40. ZITHROMAX [Concomitant]
     Active Substance: AZITHROMYCIN DIHYDRATE
  41. HYDROCODONE [Concomitant]
     Active Substance: HYDROCODONE
     Dates: start: 20160630
  42. AUGMENTIN [Concomitant]
     Active Substance: AMOXICILLIN\CLAVULANATE POTASSIUM
  43. NEXIUM [Suspect]
     Active Substance: ESOMEPRAZOLE MAGNESIUM
     Indication: GASTROOESOPHAGEAL REFLUX DISEASE
     Dosage: 20MG/DAY, 40MG/DAY
     Route: 048
     Dates: start: 2010, end: 2014
  44. ZOFRAN [Concomitant]
     Active Substance: ONDANSETRON HYDROCHLORIDE
     Indication: NAUSEA
     Dates: start: 2014, end: 2015
  45. ARMOUR THYROID [Concomitant]
     Active Substance: THYROID, PORCINE
     Dates: start: 20151215
  46. VIAGRA [Concomitant]
     Active Substance: SILDENAFIL CITRATE
  47. LISINOPRIL. [Concomitant]
     Active Substance: LISINOPRIL
  48. CHLORTHALIDONE. [Concomitant]
     Active Substance: CHLORTHALIDONE
  49. RENVELA [Concomitant]
     Active Substance: SEVELAMER CARBONATE
     Dates: start: 20170111
  50. CELEBREX [Concomitant]
     Active Substance: CELECOXIB
  51. DYAZIDE [Concomitant]
     Active Substance: HYDROCHLOROTHIAZIDE\TRIAMTERENE
  52. CYMBALTA [Concomitant]
     Active Substance: DULOXETINE HYDROCHLORIDE
  53. LASIX [Concomitant]
     Active Substance: FUROSEMIDE
  54. PRAVASTATIN. [Concomitant]
     Active Substance: PRAVASTATIN
     Dates: start: 20160120
  55. PRAVACOL [Concomitant]
     Active Substance: PRAVASTATIN SODIUM
     Dates: start: 20141002
  56. ANADROL [Concomitant]
     Active Substance: OXYMETHOLONE
     Dates: start: 20130616
  57. METHYLPREDNISOLONE. [Concomitant]
     Active Substance: METHYLPREDNISOLONE
     Dates: start: 20090510
  58. CLONAZEPAM. [Concomitant]
     Active Substance: CLONAZEPAM
     Dates: start: 20090506

REACTIONS (6)
  - Acute kidney injury [Unknown]
  - Chronic kidney disease-mineral and bone disorder [Unknown]
  - Renal failure [Unknown]
  - Chronic kidney disease [Not Recovered/Not Resolved]
  - End stage renal disease [Not Recovered/Not Resolved]
  - Nephrogenic anaemia [Unknown]

NARRATIVE: CASE EVENT DATE: 20170314
